FAERS Safety Report 5096896-3 (Version None)
Quarter: 2006Q3

REPORT INFORMATION
  Report Type: 
  Country: None (occurrence: None)
  Receive Date: 20060901
  Receipt Date: 20060901
  Transmission Date: 20061208
  Serious: Yes (Other)
  Sender: FDA-Public Use
  Company Number: None

PATIENT
  Age: 61 Year
  Sex: Female
  Weight: 68.0396 kg

DRUGS (2)
  1. CIPROFLOXACIN 250 MG TABLET TEVA [Suspect]
     Indication: URINARY TRACT INFECTION
     Dosage: 1 TABLET TWICE DAILY PO
     Route: 048
     Dates: start: 20060725, end: 20060731
  2. CPROFLOXACIN 250 MG TABLET TEVA [Suspect]
     Indication: URINARY TRACT INFECTION
     Dosage: 1 TABLET TWICE DAILY PO
     Route: 048
     Dates: start: 20060809, end: 20060810

REACTIONS (5)
  - ABASIA [None]
  - PAIN [None]
  - TENDON DISORDER [None]
  - THERAPY NON-RESPONDER [None]
  - WALKING AID USER [None]
